FAERS Safety Report 21762294 (Version 1)
Quarter: 2022Q4

REPORT INFORMATION
  Report Type: Report from Study
  Country: US (occurrence: US)
  Receive Date: 20221221
  Receipt Date: 20221221
  Transmission Date: 20230112
  Serious: No
  Sender: FDA-Public Use
  Company Number: US-ABBVIE-21K-163-4175173-00

PATIENT
  Sex: Female

DRUGS (5)
  1. HUMIRA [Suspect]
     Active Substance: ADALIMUMAB
     Indication: Hidradenitis
     Route: 058
     Dates: end: 2021
  2. HUMIRA [Suspect]
     Active Substance: ADALIMUMAB
     Dosage: DAY 29
     Route: 058
     Dates: start: 2021, end: 2021
  3. HUMIRA [Suspect]
     Active Substance: ADALIMUMAB
     Dosage: DAY 1?FOUR PENS
     Route: 058
     Dates: start: 20211016, end: 20211016
  4. HUMIRA [Suspect]
     Active Substance: ADALIMUMAB
     Dosage: DAY 15
     Route: 058
     Dates: start: 20211025, end: 20211025
  5. HUMIRA [Suspect]
     Active Substance: ADALIMUMAB
     Route: 058
     Dates: start: 202111

REACTIONS (10)
  - Self-consciousness [Not Recovered/Not Resolved]
  - Hidradenitis [Unknown]
  - Intermenstrual bleeding [Unknown]
  - Impaired quality of life [Not Recovered/Not Resolved]
  - Drug ineffective [Not Recovered/Not Resolved]
  - Hidradenitis [Not Recovered/Not Resolved]
  - Drug effect less than expected [Not Recovered/Not Resolved]
  - Pruritus [Not Recovered/Not Resolved]
  - Pain of skin [Not Recovered/Not Resolved]
  - Therapeutic product effect incomplete [Unknown]

NARRATIVE: CASE EVENT DATE: 20210101
